FAERS Safety Report 6257894-7 (Version None)
Quarter: 2009Q3

REPORT INFORMATION
  Report Type: 
  Country: None (occurrence: None)
  Receive Date: 20090707
  Receipt Date: 20090624
  Transmission Date: 20100115
  Serious: Yes (Hospitalization)
  Sender: FDA-Public Use
  Company Number: JP-PFIZER INC-2009156553

PATIENT

DRUGS (5)
  1. AZULFIDINE [Suspect]
     Indication: RHEUMATOID ARTHRITIS
     Dosage: 500 MG, 1X/DAY
     Route: 048
     Dates: start: 20010223, end: 20090113
  2. NORVASC [Concomitant]
     Dosage: UNK
     Dates: start: 20020401, end: 20090113
  3. WARFARIN [Concomitant]
     Dosage: UNK
     Dates: start: 20030609, end: 20090113
  4. DORNER [Concomitant]
     Route: 048
     Dates: start: 20030609, end: 20090113
  5. LASIX [Concomitant]
     Route: 048
     Dates: start: 20030609, end: 20090113

REACTIONS (1)
  - ANAEMIA [None]
